FAERS Safety Report 4867455-X (Version None)
Quarter: 2005Q4

REPORT INFORMATION
  Report Type: 
  Country: None (occurrence: None)
  Receive Date: 20051228
  Receipt Date: 20050908
  Transmission Date: 20060501
  Serious: Yes (Hospitalization, Disabling)
  Sender: FDA-Public Use
  Company Number: US-MERCK-0509USA01184

PATIENT
  Age: 36 Year
  Sex: Male
  Weight: 95 kg

DRUGS (7)
  1. VIOXX [Suspect]
     Indication: ARTHRALGIA
     Route: 048
     Dates: start: 20000101, end: 20010105
  2. VIOXX [Suspect]
     Route: 048
     Dates: start: 20000101, end: 20010105
  3. VIOXX [Suspect]
     Route: 048
     Dates: start: 20030129, end: 20031101
  4. VIOXX [Suspect]
     Route: 048
     Dates: start: 20030129, end: 20031101
  5. ADVIL [Concomitant]
     Route: 065
     Dates: start: 19860101
  6. WELLBUTRIN [Concomitant]
     Route: 065
     Dates: start: 20010101, end: 20010105
  7. TYLENOL [Concomitant]
     Route: 065
     Dates: start: 19860101

REACTIONS (8)
  - BACK PAIN [None]
  - BLOOD CHOLESTEROL INCREASED [None]
  - BLOOD TRIGLYCERIDES INCREASED [None]
  - CORONARY ARTERY DISEASE [None]
  - HYPERTENSION [None]
  - INTERVERTEBRAL DISC PROTRUSION [None]
  - MYOCARDIAL INFARCTION [None]
  - PYREXIA [None]
